FAERS Safety Report 22655133 (Version 1)
Quarter: 2023Q2

REPORT INFORMATION
  Report Type: Spontaneous
  Country: KR (occurrence: KR)
  Receive Date: 20230629
  Receipt Date: 20230629
  Transmission Date: 20230721
  Serious: Yes (Other)
  Sender: FDA-Public Use
  Company Number: KR-teijin-202301859_FE_P_1

PATIENT
  Age: 75 Year
  Sex: Male

DRUGS (3)
  1. FEBUXOSTAT [Suspect]
     Active Substance: FEBUXOSTAT
     Indication: Product used for unknown indication
     Dosage: UNK
     Route: 065
     Dates: start: 20221025, end: 20221119
  2. CEFAZEDONE [Concomitant]
     Active Substance: CEFAZEDONE
     Dosage: UNK
     Route: 065
  3. METHYLOL CEFALEXIN LYSINATE [Concomitant]
     Dosage: UNK
     Route: 065

REACTIONS (2)
  - Stevens-Johnson syndrome [Unknown]
  - Toxic epidermal necrolysis [Unknown]
